FAERS Safety Report 5635082-2 (Version None)
Quarter: 2008Q1

REPORT INFORMATION
  Report Type: 
  Country: None (occurrence: None)
  Receive Date: 20080222
  Receipt Date: 20080212
  Transmission Date: 20080703
  Serious: Yes (Life-Threatening, Hospitalization, Other)
  Sender: FDA-Public Use
  Company Number: US-PFIZER INC-2005022759

PATIENT
  Sex: Female
  Weight: 54.4 kg

DRUGS (5)
  1. CELEBREX [Suspect]
     Indication: SURGERY
     Route: 048
     Dates: start: 20020101, end: 20030101
  2. CELEBREX [Suspect]
     Indication: STRESS FRACTURE
  3. VIOXX [Suspect]
  4. TENORMIN [Concomitant]
     Route: 048
  5. NITROGLYCERIN [Concomitant]
     Route: 060

REACTIONS (13)
  - ANGINA PECTORIS [None]
  - CHEST DISCOMFORT [None]
  - CIRCULATORY COLLAPSE [None]
  - CONVULSION [None]
  - DIABETES MELLITUS [None]
  - INTERVERTEBRAL DISC INJURY [None]
  - MITRAL VALVE PROLAPSE [None]
  - MYOCARDIAL INFARCTION [None]
  - NAUSEA [None]
  - PALPITATIONS [None]
  - PLEURISY [None]
  - RENAL DISORDER [None]
  - VENTRICULAR EXTRASYSTOLES [None]
